FAERS Safety Report 4354059-0 (Version None)
Quarter: 2004Q2

REPORT INFORMATION
  Report Type: 
  Country: None (occurrence: None)
  Receive Date: 20040503
  Receipt Date: 20040416
  Transmission Date: 20050107
  Serious: Yes (Other)
  Sender: FDA-Public Use
  Company Number: DE-SHR-04-024166

PATIENT
  Sex: Male

DRUGS (3)
  1. BETASERON [Suspect]
     Indication: MULTIPLE SCLEROSIS
     Dosage: EVERY 2D, SUBCUTANEOUS
     Route: 058
     Dates: start: 19970101
  2. TETANUS VACCINE /0052801/ (TETANUS TOXOID) [Suspect]
     Dosage: 1 DOSE
     Dates: start: 20040401, end: 20040401
  3. BACLOFEN [Concomitant]

REACTIONS (1)
  - DIPLEGIA [None]
